FAERS Safety Report 7745705-X (Version None)
Quarter: 2011Q3

REPORT INFORMATION
  Report Type: 
  Country: None (occurrence: None)
  Receive Date: 20110829
  Receipt Date: 20110819
  Transmission Date: 20111222
  Serious: Yes (Other)
  Sender: FDA-Public Use
  Company Number: 2011SP039602

PATIENT
  Age: 49 Year
  Sex: Female

DRUGS (3)
  1. VIRAFERONPEG [Suspect]
     Indication: HEPATITIS C
     Dates: start: 20100201, end: 20100201
  2. VIRAFERONPEG [Suspect]
     Indication: HEPATITIS C
     Dates: start: 20100701, end: 20100701
  3. RIBAVIRIN [Suspect]
     Indication: HEPATITIS C
     Dates: start: 20100201

REACTIONS (1)
  - BONE MARROW FAILURE [None]
